FAERS Safety Report 14671345 (Version 1)
Quarter: 2018Q1

REPORT INFORMATION
  Report Type: Spontaneous
  Country: FR (occurrence: FR)
  Receive Date: 20180323
  Receipt Date: 20180323
  Transmission Date: 20180509
  Serious: Yes (Other)
  Sender: FDA-Public Use
  Company Number: FR-MERCK KGAA-2044350

PATIENT
  Age: 46 Year
  Sex: Female

DRUGS (1)
  1. NOVOTHYROX [Suspect]
     Active Substance: LEVOTHYROXINE SODIUM
     Indication: PRODUCT USED FOR UNKNOWN INDICATION

REACTIONS (20)
  - Anti-thyroid antibody positive [None]
  - Major depression [None]
  - Loss of personal independence in daily activities [None]
  - Impatience [None]
  - Asthenia [None]
  - Mental impairment [None]
  - Anxiety [None]
  - Decreased interest [None]
  - Impaired quality of life [None]
  - Palpitations [None]
  - Acute stress disorder [None]
  - Decreased activity [None]
  - Anger [None]
  - Neck pain [None]
  - Social problem [None]
  - Fatigue [None]
  - Somnolence [None]
  - Headache [None]
  - Apathy [None]
  - Insomnia [None]

NARRATIVE: CASE EVENT DATE: 20170313
